FAERS Safety Report 9738382 (Version 4)
Quarter: 2014Q1

REPORT INFORMATION
  Report Type: Spontaneous
  Country: KR (occurrence: KR)
  Receive Date: 20131208
  Receipt Date: 20140109
  Transmission Date: 20141002
  Serious: Yes (Other)
  Sender: FDA-Public Use
  Company Number: KR-ROCHE-1302227

PATIENT
  Age: 78 Year
  Sex: Female

DRUGS (4)
  1. RANIBIZUMAB [Suspect]
     Indication: AGE-RELATED MACULAR DEGENERATION
     Dosage: DATE OF LAST RANIBIZUMAB INJECTION: 13/OCT/2011 AND RECEIVED 2 APPLICATIONS IN TOTAL.
     Route: 050
     Dates: start: 20111013
  2. ALCAINE [Concomitant]
  3. POVIDONE IODINE [Concomitant]
  4. OCUFLOX [Concomitant]
     Dosage: INSTILLED FOR 3 DAYS AFTER THE PROCEDURE
     Route: 065

REACTIONS (3)
  - Retinal pigment epithelial tear [Unknown]
  - Retinal oedema [Unknown]
  - Visual acuity reduced [Unknown]
